FAERS Safety Report 13446178 (Version 1)
Quarter: 2017Q2

REPORT INFORMATION
  Report Type: Spontaneous
  Country: US (occurrence: US)
  Receive Date: 20170417
  Receipt Date: 20170417
  Transmission Date: 20170830
  Serious: No
  Sender: FDA-Public Use
  Company Number: US-ELI_LILLY_AND_COMPANY-US201704001612

PATIENT
  Sex: Male

DRUGS (6)
  1. PROBIOTIC                          /06395501/ [Concomitant]
     Active Substance: BIFIDOBACTERIUM ANIMALIS SUBSP. LACTIS
     Dosage: UNK, UNKNOWN
  2. SAW PALMETTO                       /00833501/ [Concomitant]
     Active Substance: HERBALS\SAW PALMETTO
     Dosage: UNK, UNKNOWN
  3. CIALIS [Suspect]
     Active Substance: TADALAFIL
     Indication: ERECTILE DYSFUNCTION
     Dosage: 20 MG, PRN
     Route: 048
     Dates: start: 201703
  4. L ARGININE                         /00126101/ [Concomitant]
     Dosage: UNK, UNKNOWN
  5. TURMERIC                           /01079602/ [Concomitant]
     Active Substance: HERBALS\TURMERIC
     Dosage: UNK, UNKNOWN
  6. NIACIN. [Concomitant]
     Active Substance: NIACIN
     Dosage: UNK, UNKNOWN

REACTIONS (3)
  - Ear congestion [Recovered/Resolved]
  - Feeling hot [Recovered/Resolved]
  - Therapeutic response decreased [Not Recovered/Not Resolved]
